FAERS Safety Report 20591886 (Version 1)
Quarter: 2022Q1

REPORT INFORMATION
  Report Type: Spontaneous
  Country: None (occurrence: US)
  Receive Date: 20220314
  Receipt Date: 20220314
  Transmission Date: 20220423
  Serious: Yes (Disabling, Other)
  Sender: FDA-Public Use
  Company Number: US-Edgewell Personal Care, LLC-2126768

PATIENT
  Age: 27 Year
  Sex: Male
  Weight: 103.18 kg

DRUGS (1)
  1. BANANA BOAT SPORT COOLZONE CLEAR SUNSCREEN BROAD SPECTRUM SPF 30 [Suspect]
     Active Substance: AVOBENZONE\HOMOSALATE\OCTISALATE\OCTOCRYLENE
     Indication: Prophylaxis against solar radiation
     Route: 061
     Dates: start: 20210530, end: 20210530

REACTIONS (7)
  - Impaired work ability [Recovered/Resolved]
  - Sunburn [Recovered/Resolved]
  - Dermatitis contact [Not Recovered/Not Resolved]
  - Blister [Recovered/Resolved]
  - Scar [Not Recovered/Not Resolved]
  - Anxiety [Not Recovered/Not Resolved]
  - Gait disturbance [Not Recovered/Not Resolved]

NARRATIVE: CASE EVENT DATE: 20210531
